FAERS Safety Report 20013182 (Version 2)
Quarter: 2021Q4

REPORT INFORMATION
  Report Type: Spontaneous
  Country: US (occurrence: US)
  Receive Date: 20211029
  Receipt Date: 20211207
  Transmission Date: 20220303
  Serious: Yes (Life-Threatening, Hospitalization)
  Sender: FDA-Public Use
  Company Number: US-LUNDBECK-DKLU3040118

PATIENT
  Age: 74 Year
  Sex: Male

DRUGS (4)
  1. NORTHERA [Suspect]
     Active Substance: DROXIDOPA
     Indication: Parkinson^s disease
     Route: 048
     Dates: start: 20200918
  2. NORTHERA [Suspect]
     Active Substance: DROXIDOPA
     Indication: Orthostatic hypotension
  3. NORTHERA [Suspect]
     Active Substance: DROXIDOPA
     Indication: Dizziness
  4. NORTHERA [Suspect]
     Active Substance: DROXIDOPA
     Indication: Neurodegenerative disorder

REACTIONS (1)
  - Terminal state [Unknown]
